FAERS Safety Report 8813417 (Version 1)
Quarter: 2012Q4

REPORT INFORMATION
  Report Type: 
  Country: US (occurrence: US)
  Receive Date: 20120927
  Receipt Date: 20120927
  Transmission Date: 20130627
  Serious: No
  Sender: FDA-Public Use
  Company Number: US-AMGEN-USASP2012046926

PATIENT
  Age: 69 Year
  Sex: Female

DRUGS (3)
  1. PROLIA [Suspect]
     Indication: OSTEOPOROSIS POSTMENOPAUSAL
     Dosage: UNK UNK, q6mo
     Dates: start: 201110
  2. DILANTIN                           /00017401/ [Concomitant]
     Dosage: UNK
  3. PHENOBARBITAL [Concomitant]
     Dosage: UNK

REACTIONS (4)
  - Nodule [Unknown]
  - Burning sensation [Unknown]
  - Dysstasia [Unknown]
  - Asthenia [Unknown]
